FAERS Safety Report 5141494-6 (Version None)
Quarter: 2006Q4

REPORT INFORMATION
  Report Type: 
  Country: None (occurrence: None)
  Receive Date: 20061101
  Receipt Date: 20060329
  Transmission Date: 20070319
  Serious: Yes (Hospitalization)
  Sender: FDA-Public Use
  Company Number: FR-MERCK-0603FRA00103

PATIENT
  Age: 68 Year
  Sex: Female
  Weight: 69 kg

DRUGS (10)
  1. COZAAR [Suspect]
     Indication: HYPERTENSION
     Route: 048
  2. NICARDIPINE HYDROCHLORIDE [Suspect]
     Indication: HYPERTENSION
     Route: 048
  3. RILMENIDINE PHOSPHATE [Suspect]
     Indication: HYPERTENSION
     Route: 048
  4. OMEPRAZOLE [Suspect]
     Route: 048
  5. PRAMIPEXOLE DIHYDROCHLORIDE [Suspect]
     Indication: PARKINSON'S DISEASE
     Route: 048
     Dates: start: 20060120
  6. GABAPENTIN [Suspect]
     Route: 048
     Dates: start: 20050101
  7. CARBIDOPA AND LEVODOPA [Concomitant]
     Route: 048
  8. BENSERAZIDE HYDROCHLORIDE AND LEVODOPA [Concomitant]
     Route: 048
  9. AZATHIOPRINE [Concomitant]
     Route: 048
  10. FUROSEMIDE [Concomitant]
     Route: 048

REACTIONS (3)
  - FACE OEDEMA [None]
  - OEDEMA PERIPHERAL [None]
  - WEIGHT INCREASED [None]
